FAERS Safety Report 10042350 (Version 1)
Quarter: 2014Q1

REPORT INFORMATION
  Report Type: Spontaneous
  Country: US (occurrence: US)
  Receive Date: 20140327
  Receipt Date: 20140327
  Transmission Date: 20141002
  Serious: Yes (Hospitalization)
  Sender: FDA-Public Use
  Company Number: US-BAYER-2014-044353

PATIENT
  Age: 20 Year
  Sex: Female

DRUGS (2)
  1. DROSPIRENONE + ETHINYLESTRADIOL [Suspect]
     Indication: POLYCYSTIC OVARIES
     Dosage: UNK
  2. METFORMIN [Suspect]
     Indication: TYPE 2 DIABETES MELLITUS
     Dosage: UNK

REACTIONS (3)
  - Autoimmune hepatitis [Recovering/Resolving]
  - Hypergammaglobulinaemia [Recovering/Resolving]
  - Liver injury [Recovering/Resolving]
